FAERS Safety Report 9700959 (Version 1)
Quarter: 2013Q4

REPORT INFORMATION
  Report Type: Spontaneous
  Country: US (occurrence: None)
  Receive Date: 20131120
  Receipt Date: 20131120
  Transmission Date: 20140711
  Serious: Yes (Other)
  Sender: FDA-Public Use
  Company Number: None

PATIENT
  Age: 52 Year
  Sex: Female
  Weight: 63.5 kg

DRUGS (1)
  1. LEXAPRO [Suspect]
     Indication: DEPRESSION
     Dosage: GENERIC LEXAPRO TWICE DAILY

REACTIONS (5)
  - Depression [None]
  - Anxiety [None]
  - Therapeutic response unexpected with drug substitution [None]
  - Product substitution issue [None]
  - Drug ineffective [None]
